FAERS Safety Report 12682364 (Version 1)
Quarter: 2016Q3

REPORT INFORMATION
  Report Type: Spontaneous
  Country: CO (occurrence: CO)
  Receive Date: 20160825
  Receipt Date: 20160825
  Transmission Date: 20161109
  Serious: Yes (Other)
  Sender: FDA-Public Use
  Company Number: CO-AMGEN-COLSP2016030824

PATIENT
  Age: 53 Year
  Sex: Female

DRUGS (1)
  1. ENBREL [Suspect]
     Active Substance: ETANERCEPT
     Indication: RHEUMATOID ARTHRITIS
     Dosage: 50 MG, WEEKLY
     Route: 058
     Dates: start: 2012

REACTIONS (5)
  - Mobility decreased [Not Recovered/Not Resolved]
  - Peripheral swelling [Unknown]
  - Anaemia [Not Recovered/Not Resolved]
  - Autoimmune hepatitis [Unknown]
  - Finger deformity [Unknown]

NARRATIVE: CASE EVENT DATE: 2015
